FAERS Safety Report 21219721 (Version 8)
Quarter: 2024Q3

REPORT INFORMATION
  Report Type: Report from Study
  Country: US (occurrence: US)
  Receive Date: 20220817
  Receipt Date: 20240815
  Transmission Date: 20241017
  Serious: Yes (Other)
  Sender: TAKEDA
  Company Number: US-TAKEDA-US202009859

PATIENT
  Sex: Female

DRUGS (3)
  1. HUMAN IMMUNOGLOBULIN G [Suspect]
     Active Substance: HUMAN IMMUNOGLOBULIN G
     Indication: Immunodeficiency common variable
     Dosage: UNK UNK, 3/WEEK
     Route: 065
  2. HUMAN IMMUNOGLOBULIN G [Suspect]
     Active Substance: HUMAN IMMUNOGLOBULIN G
     Indication: Primary immunodeficiency syndrome
     Dosage: 14 GRAM, 2/WEEK
     Route: 065
  3. HUMAN IMMUNOGLOBULIN G [Suspect]
     Active Substance: HUMAN IMMUNOGLOBULIN G
     Dosage: 14 GRAM, Q2WEEKS
     Route: 058

REACTIONS (15)
  - Thrombosis [Unknown]
  - Hand fracture [Recovering/Resolving]
  - Illness [Recovering/Resolving]
  - Cyst [Unknown]
  - Cardiac disorder [Unknown]
  - Oropharyngeal discomfort [Unknown]
  - Feeling abnormal [Recovering/Resolving]
  - Oropharyngeal pain [Recovering/Resolving]
  - Pyrexia [Unknown]
  - Fatigue [Unknown]
  - Arthropathy [Unknown]
  - Fall [Recovering/Resolving]
  - Respiratory tract infection [Recovering/Resolving]
  - Weight decreased [Recovering/Resolving]
  - Inappropriate schedule of product administration [Unknown]
